FAERS Safety Report 7512653-X (Version None)
Quarter: 2011Q2

REPORT INFORMATION
  Report Type: 
  Country: None (occurrence: None)
  Receive Date: 20110520
  Receipt Date: 20110512
  Transmission Date: 20111010
  Serious: Yes (Other)
  Sender: FDA-Public Use
  Company Number: JPI-P-015073

PATIENT
  Age: 39 Year
  Sex: Female
  Weight: 95.2554 kg

DRUGS (8)
  1. NADOLOL [Concomitant]
  2. MODAFINIL [Concomitant]
  3. ZOLPIDEM TARTRATE [Concomitant]
  4. XYREM [Suspect]
     Indication: NARCOLEPSY
     Dosage: 4.5 GM (2.25 GM, 2 IN 1 D), ORAL
     Route: 048
     Dates: start: 20110421
  5. XYREM [Suspect]
     Indication: SOMNOLENCE
     Dosage: 4.5 GM (2.25 GM, 2 IN 1 D), ORAL
     Route: 048
     Dates: start: 20110421
  6. MILNACIPRAN HYDROCHLORIDE [Concomitant]
  7. SERTRALINE HYDROCHLORIDE [Concomitant]
  8. ARMODAFINIL [Concomitant]

REACTIONS (5)
  - BLOOD PRESSURE SYSTOLIC INCREASED [None]
  - HEART RATE INCREASED [None]
  - PANIC REACTION [None]
  - EMOTIONAL DISORDER [None]
  - POOR QUALITY SLEEP [None]
